FAERS Safety Report 25015334 (Version 3)
Quarter: 2025Q2

REPORT INFORMATION
  Report Type: Spontaneous
  Country: AU (occurrence: AU)
  Receive Date: 20250226
  Receipt Date: 20250422
  Transmission Date: 20250717
  Serious: Yes (Other)
  Sender: CSL BEHRING
  Company Number: AU-BEH-2025197096

PATIENT
  Sex: Female

DRUGS (6)
  1. HUMAN RHO(D) IMMUNE GLOBULIN [Suspect]
     Active Substance: HUMAN RHO(D) IMMUNE GLOBULIN
     Indication: Prophylaxis against Rh isoimmunisation
     Route: 065
  2. HUMAN RHO(D) IMMUNE GLOBULIN [Suspect]
     Active Substance: HUMAN RHO(D) IMMUNE GLOBULIN
     Indication: Prophylaxis
     Route: 065
  3. RHOPHYLAC [Suspect]
     Active Substance: HUMAN RHO(D) IMMUNE GLOBULIN
     Indication: Prophylaxis against Rh isoimmunisation
     Route: 065
  4. RHOPHYLAC [Suspect]
     Active Substance: HUMAN RHO(D) IMMUNE GLOBULIN
     Indication: Prophylaxis against Rh isoimmunisation
     Route: 065
  5. RHOPHYLAC [Suspect]
     Active Substance: HUMAN RHO(D) IMMUNE GLOBULIN
     Indication: Prophylaxis
  6. RHOPHYLAC [Suspect]
     Active Substance: HUMAN RHO(D) IMMUNE GLOBULIN
     Indication: Prophylaxis

REACTIONS (2)
  - Foetal death [Unknown]
  - Maternal exposure during pregnancy [Unknown]
